FAERS Safety Report 5848416-0 (Version None)
Quarter: 2008Q3

REPORT INFORMATION
  Report Type: 
  Country: None (occurrence: None)
  Receive Date: 20080818
  Receipt Date: 20080807
  Transmission Date: 20090109
  Serious: Yes (Hospitalization)
  Sender: FDA-Public Use
  Company Number: CH-WYE-H05579608

PATIENT
  Age: 82 Year
  Sex: Male

DRUGS (7)
  1. CORDARONE [Suspect]
     Indication: ATRIAL FLUTTER
     Route: 048
     Dates: start: 20071101, end: 20071101
  2. SINTROM [Concomitant]
     Dosage: UNSPECIFIED
     Route: 048
  3. PANTOZOL [Concomitant]
     Dosage: 1 UNIT EVERY 1 DAY
     Route: 048
  4. TOREM [Concomitant]
     Route: 048
  5. ENALAPRIL [Concomitant]
     Dosage: 1 UNIT EVERY 1 DAY
     Route: 048
  6. DILATREND [Interacting]
     Dosage: 1 UNIT EVERY 1 DAY
     Route: 048
     Dates: end: 20071101
  7. SORTIS ^GOEDECKE^ [Concomitant]
     Dosage: UNSPECIFIED
     Route: 048

REACTIONS (4)
  - BRADYCARDIA [None]
  - CARDIOGENIC SHOCK [None]
  - DRUG INTERACTION [None]
  - RENAL FAILURE CHRONIC [None]
